FAERS Safety Report 8781170 (Version 2)
Quarter: 2013Q4

REPORT INFORMATION
  Report Type: Spontaneous
  Country: US (occurrence: US)
  Receive Date: 20120913
  Receipt Date: 20131105
  Transmission Date: 20140711
  Serious: Yes (Hospitalization, Other)
  Sender: FDA-Public Use
  Company Number: US-009507513-1209USA001944

PATIENT
  Age: 49 Year
  Sex: Female

DRUGS (3)
  1. PEG-INTRON [Suspect]
     Indication: HEPATITIS C
     Dosage: UNK
     Dates: start: 20120810, end: 20120818
  2. REBETOL [Suspect]
     Indication: HEPATITIS C
     Dosage: UNK
     Dates: start: 20120810, end: 20120818
  3. TELAPREVIR [Concomitant]
     Indication: HEPATITIS C
     Dosage: UNK
     Dates: start: 20120810, end: 20120818

REACTIONS (7)
  - Cerebrovascular accident [Unknown]
  - Vision blurred [Unknown]
  - Photopsia [Unknown]
  - Hypoaesthesia [Unknown]
  - Headache [Unknown]
  - Paraesthesia [Unknown]
  - Migraine [Unknown]
